FAERS Safety Report 7144980-2 (Version None)
Quarter: 2010Q4

REPORT INFORMATION
  Report Type: 
  Country: None (occurrence: None)
  Receive Date: 20101208
  Receipt Date: 20101129
  Transmission Date: 20110411
  Serious: Yes (Death)
  Sender: FDA-Public Use
  Company Number: MX-BRISTOL-MYERS SQUIBB COMPANY-15419740

PATIENT
  Age: 83 Year
  Sex: Female

DRUGS (1)
  1. COAPROVEL TABS 300MG/ 25MG [Suspect]

REACTIONS (1)
  - DEATH [None]
